FAERS Safety Report 7360330-0 (Version None)
Quarter: 2011Q1

REPORT INFORMATION
  Report Type: 
  Country: None (occurrence: None)
  Receive Date: 20110318
  Receipt Date: 20100909
  Transmission Date: 20110831
  Serious: Yes (Hospitalization)
  Sender: FDA-Public Use
  Company Number: US-BAYER-200942372NA

PATIENT
  Sex: Female
  Weight: 58.957 kg

DRUGS (4)
  1. YASMIN [Suspect]
     Indication: PREMENSTRUAL SYNDROME
     Dosage: UNK
     Dates: start: 20071101, end: 20080401
  2. YAZ [Suspect]
     Indication: PREMENSTRUAL SYNDROME
     Dosage: UNK
     Dates: start: 20071101, end: 20080401
  3. YASMIN [Suspect]
  4. YAZ [Suspect]

REACTIONS (6)
  - GALLBLADDER DISORDER [None]
  - CHOLELITHIASIS [None]
  - CHEST PAIN [None]
  - GASTROOESOPHAGEAL REFLUX DISEASE [None]
  - NAUSEA [None]
  - CHOLECYSTITIS ACUTE [None]
